FAERS Safety Report 19949642 (Version 2)
Quarter: 2025Q2

REPORT INFORMATION
  Report Type: Report from Study
  Country: RO (occurrence: RO)
  Receive Date: 20211013
  Receipt Date: 20250627
  Transmission Date: 20250716
  Serious: Yes (Other)
  Sender: AUROBINDO
  Company Number: RO-ABBVIE-21K-135-3867462-00

PATIENT

DRUGS (6)
  1. RIBAVIRIN [Suspect]
     Active Substance: RIBAVIRIN
     Indication: Hepatic cirrhosis
     Route: 065
  2. RIBAVIRIN [Suspect]
     Active Substance: RIBAVIRIN
     Indication: Chronic hepatitis C
     Route: 065
  3. DASABUVIR [Suspect]
     Active Substance: DASABUVIR
     Indication: Chronic hepatitis C
     Route: 065
  4. DASABUVIR [Suspect]
     Active Substance: DASABUVIR
     Indication: Hepatic cirrhosis
     Dosage: 500 MILLIGRAM, ONCE A DAY
     Route: 065
  5. OMBITASVIR\PARITAPREVIR\RITONAVIR [Suspect]
     Active Substance: OMBITASVIR\PARITAPREVIR\RITONAVIR
     Indication: Hepatic cirrhosis
     Route: 065
  6. OMBITASVIR\PARITAPREVIR\RITONAVIR [Suspect]
     Active Substance: OMBITASVIR\PARITAPREVIR\RITONAVIR
     Indication: Chronic hepatitis C
     Dosage: 2 DOSAGE FORM, ONCE A DAY(12.5MG/75MG/100MG )
     Route: 065

REACTIONS (1)
  - Hepatitis C [Unknown]
